FAERS Safety Report 12186673 (Version 1)
Quarter: 2016Q1

REPORT INFORMATION
  Report Type: Spontaneous
  Country: US (occurrence: None)
  Receive Date: 20160316
  Receipt Date: 20160316
  Transmission Date: 20160526
  Serious: Yes (Hospitalization)
  Sender: FDA-Public Use
  Company Number: None

PATIENT
  Age: 66 Year
  Sex: Male
  Weight: 56.8 kg

DRUGS (1)
  1. WARFARIN [Suspect]
     Active Substance: WARFARIN
     Indication: AORTIC VALVE REPLACEMENT
     Dosage: 4 MG AT BEDTIME PO
     Route: 048
     Dates: start: 20061117

REACTIONS (8)
  - Haemoglobin decreased [None]
  - Haemoptysis [None]
  - Dyspnoea [None]
  - Blood pressure decreased [None]
  - Melaena [None]
  - Helicobacter test positive [None]
  - International normalised ratio increased [None]
  - Gastric ulcer [None]

NARRATIVE: CASE EVENT DATE: 20150811
